FAERS Safety Report 18382351 (Version 1)
Quarter: 2020Q4

REPORT INFORMATION
  Report Type: Spontaneous
  Country: US (occurrence: US)
  Receive Date: 20201014
  Receipt Date: 20201014
  Transmission Date: 20210114
  Serious: Yes (Other)
  Sender: FDA-Public Use
  Company Number: US-BAUSCH-BL-2020-028525

PATIENT
  Age: 72 Year
  Sex: Female

DRUGS (2)
  1. LACRISERT [Suspect]
     Active Substance: HYDROXYPROPYL CELLULOSE
     Indication: DRY EYE
     Dosage: EXTEND HER SUPPLY EVERY OTHER DAY
     Route: 047
  2. LACRISERT [Suspect]
     Active Substance: HYDROXYPROPYL CELLULOSE
     Indication: BLEPHARITIS
     Dosage: APPROXIMATELY 30 YEARS PRIOR TO DATE OF REPORT, 1 OPHTHALMIC INSERT IN EACH EYE DAILY
     Route: 047

REACTIONS (7)
  - Intentional product use issue [Unknown]
  - Eye pain [Not Recovered/Not Resolved]
  - Ocular hyperaemia [Not Recovered/Not Resolved]
  - Product availability issue [Unknown]
  - Dry eye [Not Recovered/Not Resolved]
  - Therapy interrupted [Unknown]
  - Eye disorder [Unknown]
